FAERS Safety Report 19190615 (Version 2)
Quarter: 2021Q2

REPORT INFORMATION
  Report Type: Spontaneous
  Country: JP (occurrence: JP)
  Receive Date: 20210428
  Receipt Date: 20210519
  Transmission Date: 20210717
  Serious: Yes (Hospitalization)
  Sender: FDA-Public Use
  Company Number: JP-EISAI MEDICAL RESEARCH-EC-2020-085531

PATIENT
  Age: 23 Year
  Sex: Female

DRUGS (5)
  1. VALPROATE NA [Suspect]
     Active Substance: VALPROATE SODIUM
     Route: 048
     Dates: start: 20201214, end: 20201214
  2. BROMAZEPAM [Suspect]
     Active Substance: BROMAZEPAM
     Indication: ANXIETY
     Route: 048
  3. DAYVIGO [Suspect]
     Active Substance: LEMBOREXANT
     Indication: INSOMNIA
     Route: 048
     Dates: end: 20201213
  4. DAYVIGO [Suspect]
     Active Substance: LEMBOREXANT
     Dosage: 30 TABLETS OF DAYVIGO 2.5 MG (TOTAL DOSE 75 MG)
     Dates: start: 20201214, end: 20201214
  5. VALPROATE NA [Suspect]
     Active Substance: VALPROATE SODIUM
     Indication: MANIA
     Route: 048
     Dates: end: 20201213

REACTIONS (3)
  - Somnolence [Recovered/Resolved]
  - Intentional overdose [Recovered/Resolved]
  - Dizziness [Recovered/Resolved]

NARRATIVE: CASE EVENT DATE: 20201214
